FAERS Safety Report 10066436 (Version 2)
Quarter: 2014Q2

REPORT INFORMATION
  Report Type: Report from Study
  Country: US (occurrence: US)
  Receive Date: 20140408
  Receipt Date: 20140626
  Transmission Date: 20141212
  Serious: Yes (Hospitalization, Other)
  Sender: FDA-Public Use
  Company Number: PHEH2014US006718

PATIENT
  Age: 72 Year
  Sex: Female

DRUGS (23)
  1. GLEEVEC [Suspect]
     Indication: GASTROINTESTINAL STROMAL TUMOUR
     Dosage: 400 MG, QD
     Route: 048
     Dates: start: 20131202
  2. GLEEVEC [Suspect]
     Dosage: 100 MG, QD
     Route: 048
     Dates: end: 20140527
  3. MULTIVITAMIN                       /00097801/ [Concomitant]
     Dosage: UNK UKN, UNK
     Dates: start: 20080109
  4. ACETAMINOPHEN AND CODEINE [Concomitant]
     Indication: PAIN
     Dosage: 1 DF, (300-30MG, 4 TO 6 HRS AS NEEDED)
     Route: 048
     Dates: start: 20130920
  5. TYLENOL WITH CODEIN                /00116401/ [Concomitant]
     Indication: PAIN
     Dosage: 1 TO 2 TABLETS(30-300MG), EVERY 4-6 HRS AS NEEDED
     Route: 048
     Dates: start: 20100715
  6. ADVAIR DISKUS [Concomitant]
     Dosage: 250 TO 50 MCG/DOSE, 1 PUFFS BID
     Route: 055
     Dates: start: 20130222
  7. XANAX [Concomitant]
     Dosage: 1/2 TO 1 TABLET DAILY AS NEEDED
     Route: 048
     Dates: start: 20090320
  8. DICYCLOMINE HCL [Concomitant]
     Dosage: 1 DF, DAILY
     Route: 048
     Dates: start: 20130516
  9. LOMOTIL                            /00034001/ [Concomitant]
     Indication: DIARRHOEA
     Dosage: 1 DF (0.25 TO 0.025), 4 TIMES DAILY AS NEEDED
     Route: 048
     Dates: start: 20131122
  10. FLUOCINONIDE [Concomitant]
     Dosage: APPLY TO AFFECTED AREA, BID
     Route: 061
     Dates: start: 20110613
  11. KETOCONAZOLE [Concomitant]
     Indication: PRURITUS
     Dosage: APPLY TO AFFECTED AREA, QD
     Route: 061
     Dates: start: 20041016
  12. LISINOPRIL [Concomitant]
     Dosage: 1 DF, DAILY
     Route: 048
     Dates: start: 20111123
  13. NITROSTAT [Concomitant]
     Indication: CHEST PAIN
     Dosage: 1 DF, AS NEEDED
     Route: 060
     Dates: start: 20040130
  14. OMEPRAZOLE [Concomitant]
     Dosage: 1 DF, BID
     Route: 048
     Dates: start: 20130516
  15. OXYCODONE AND ACETAMINOPHEN [Concomitant]
     Dosage: 1 DF (5-325MG), BID PRN
     Route: 048
     Dates: start: 20131017
  16. PRAVASTATIN SODIUM [Concomitant]
     Dosage: 1 DF, DAILY
     Route: 048
     Dates: start: 20081113
  17. PROAIR HFA (ALBUTEROL SULFATE) INHALATION AEROSOL [Concomitant]
     Dosage: 1 TO 2 PUFFS, EVERY 4-6 HOURS AS NEEDED
     Route: 055
     Dates: start: 20130222
  18. PROCHLORPERAZINE MALEATE [Concomitant]
     Dosage: 1 DF, EVERY 4-6 HOURS AS NEEDED
     Route: 048
     Dates: start: 20080403
  19. PROPRANOLOL HCL [Concomitant]
     Dosage: 1 DF, BID
     Route: 048
     Dates: start: 20090615
  20. SUMATRIPTAN SUCCINATE [Concomitant]
     Indication: MIGRAINE
     Dosage: 1 DF, MAY REPEAT 2 HRS LATER MAXIMUM OF 200MG DAILY
     Route: 048
     Dates: start: 20091228
  21. TRIAMTERENE/HCTZ [Concomitant]
     Dosage: 1 DF (37.5 TO 25MG), DAILY
     Dates: start: 20110615
  22. VENLAFAXINE HCL [Concomitant]
     Dosage: 1 DF, BID
     Dates: start: 20130206
  23. AMBIEN [Concomitant]
     Indication: INSOMNIA
     Dosage: 1 DF, PRN (BEDTIME)
     Dates: start: 20020725

REACTIONS (15)
  - Bladder cancer [Unknown]
  - Second primary malignancy [Unknown]
  - Pallor [Unknown]
  - Cystitis haemorrhagic [Recovering/Resolving]
  - Intra-abdominal pressure increased [Unknown]
  - Urinary tract infection [Recovering/Resolving]
  - Haematuria [Unknown]
  - Back pain [Unknown]
  - Micturition urgency [Unknown]
  - Abdominal pain [Unknown]
  - Myalgia [Unknown]
  - Anxiety [Unknown]
  - Blood pressure increased [Unknown]
  - Cerebrovascular accident [Unknown]
  - Rash [Unknown]
